FAERS Safety Report 5974751-1 (Version None)
Quarter: 2008Q4

REPORT INFORMATION
  Report Type: 
  Country: None (occurrence: None)
  Receive Date: 20081201
  Receipt Date: 20081126
  Transmission Date: 20090506
  Serious: Yes (Other)
  Sender: FDA-Public Use
  Company Number: US-PFIZER INC-2008100378

PATIENT
  Age: 94 Year
  Sex: Female

DRUGS (1)
  1. GEODON (IM) [Suspect]
     Indication: DEMENTIA
     Dosage: DAILY DOSE:15MG-FREQ:DAILY
     Route: 030

REACTIONS (3)
  - CHEST PAIN [None]
  - ENZYME ABNORMALITY [None]
  - MYOCARDIAL INFARCTION [None]
